FAERS Safety Report 24910787 (Version 1)
Quarter: 2025Q1

REPORT INFORMATION
  Report Type: Spontaneous
  Country: CN (occurrence: CN)
  Receive Date: 20250131
  Receipt Date: 20250131
  Transmission Date: 20250408
  Serious: Yes (Death, Hospitalization, Other)
  Sender: RISING PHARMACEUTICALS
  Company Number: CN-RISINGPHARMA-CN-2025RISLIT00045

PATIENT
  Age: 13 Day
  Sex: Male

DRUGS (2)
  1. LINEZOLID [Suspect]
     Active Substance: LINEZOLID
     Indication: Staphylococcal infection
     Dosage: INTRAVENOUS INFUSION RATE 15 ML/H
     Route: 042
  2. VITAMIN AD [Concomitant]
     Active Substance: PETROLATUM
     Dosage: 1500 IU:500 IU
     Route: 065

REACTIONS (6)
  - Neonatal respiratory arrest [Fatal]
  - Cardiac arrest neonatal [Fatal]
  - Necrotising enterocolitis neonatal [Fatal]
  - Lactic acidosis [Fatal]
  - Hypoxic-ischaemic encephalopathy [Fatal]
  - Multiple organ dysfunction syndrome [Fatal]
